FAERS Safety Report 13640853 (Version 1)
Quarter: 2017Q2

REPORT INFORMATION
  Report Type: Spontaneous
  Country: US (occurrence: US)
  Receive Date: 20170612
  Receipt Date: 20170612
  Transmission Date: 20170830
  Serious: No
  Sender: FDA-Public Use
  Company Number: US-TEVA-751477ACC

PATIENT
  Sex: Male

DRUGS (1)
  1. TESTOSTERONE CYPIONATE INJESTION [Suspect]
     Active Substance: TESTOSTERONE CYPIONATE
     Dosage: 2000MG/10ML

REACTIONS (5)
  - Hypotrichosis [Unknown]
  - Product quality issue [Unknown]
  - Erectile dysfunction [Unknown]
  - Drug ineffective [Unknown]
  - Asthenia [Unknown]
